FAERS Safety Report 7622329-6 (Version None)
Quarter: 2011Q3

REPORT INFORMATION
  Report Type: 
  Country: None (occurrence: None)
  Receive Date: 20110720
  Receipt Date: 20090129
  Transmission Date: 20111222
  Serious: Yes (Death, Hospitalization)
  Sender: FDA-Public Use
  Company Number: US-BAYER-2011-005817

PATIENT
  Age: 76 Year
  Sex: Male
  Weight: 68.027 kg

DRUGS (24)
  1. AMICAR [Concomitant]
     Dosage: 10 G, UNK
     Dates: start: 20061227
  2. TRAZODONE [Concomitant]
     Dosage: 150 MG, HALF AT NIGHT
  3. ISOFLURANE [Concomitant]
  4. DOPAMINE HCL [Concomitant]
     Dosage: 15
  5. EPINEPHRINE [Concomitant]
     Dosage: 20
  6. PLATELETS [Concomitant]
     Dosage: 2 U, UNK
  7. LIDOCAINE [Concomitant]
     Dosage: 100 MG, UNK
  8. FRESH FROZEN PLASMA [Concomitant]
     Dosage: 3 U, UNK
  9. TRASYLOL [Suspect]
     Indication: AORTIC VALVE REPLACEMENT
  10. CEFAZOLIN [Concomitant]
     Dosage: 1 G, UNK
  11. RED BLOOD CELLS [Concomitant]
     Dosage: 4 U, UNK
  12. AVALIDE [Concomitant]
     Dosage: 12.5/150 MG, QD
  13. VECURONIUM BROMIDE [Concomitant]
  14. TRASYLOL [Suspect]
     Indication: CORONARY ARTERY BYPASS
     Route: 042
  15. FENTANYL-100 [Concomitant]
  16. HEPARIN [Concomitant]
     Dosage: 30000 U, UNK
  17. PAPAVERINE [Concomitant]
     Dosage: 60 MG, UNK
  18. PHENYLEPHRINE HCL [Concomitant]
     Dosage: DRIP
  19. VANCOMYCIN [Concomitant]
     Dosage: 2 G, UNK
  20. OMNIPAQUE 140 [Concomitant]
     Indication: CATHETERISATION CARDIAC
     Dosage: 125 CC
     Dates: start: 20061116
  21. ATENOLOL [Concomitant]
     Dosage: 50 MG, QD
  22. VERSED [Concomitant]
  23. ETOMIDATE [Concomitant]
  24. PROTAMINE SULFATE [Concomitant]

REACTIONS (5)
  - INJURY [None]
  - ANXIETY [None]
  - DEATH [None]
  - RENAL IMPAIRMENT [None]
  - PAIN [None]
